FAERS Safety Report 6188347-2 (Version None)
Quarter: 2009Q2

REPORT INFORMATION
  Report Type: 
  Country: None (occurrence: None)
  Receive Date: 20090513
  Receipt Date: 20090505
  Transmission Date: 20091009
  Serious: Yes (Other)
  Sender: FDA-Public Use
  Company Number: US-AVENTIS-200912302US

PATIENT
  Sex: Male
  Weight: 109.09 kg

DRUGS (4)
  1. ENOXAPARIN SODIUM [Suspect]
  2. ENOXAPARIN SODIUM [Suspect]
  3. ENOXAPARIN SODIUM [Suspect]
  4. ENOXAPARIN SODIUM [Suspect]

REACTIONS (2)
  - COMPRESSION FRACTURE [None]
  - OSTEOPOROSIS [None]
